FAERS Safety Report 10649578 (Version 1)
Quarter: 2014Q4

REPORT INFORMATION
  Report Type: Spontaneous
  Country: US (occurrence: None)
  Receive Date: 20141205
  Receipt Date: 20141205
  Transmission Date: 20150529
  Serious: No
  Sender: FDA-Public Use
  Company Number: USA-2014100250

PATIENT
  Age: 65 Year
  Sex: Female
  Weight: 73 kg

DRUGS (18)
  1. LEVOTHYROXINE(LEVOTHYROXINE) [Concomitant]
  2. NYSTATIN(NYSTATIN) [Concomitant]
  3. ZOMETA(ZOLEDRONIC ACID) [Concomitant]
  4. PANTOPRAZOLE(PANTOPRAZOLE) [Concomitant]
  5. ASPIRIN(ACETYLSALICYLIC ACID) [Concomitant]
     Active Substance: ASPIRIN
  6. ASPIRIN(ACETYLSALICYLIC ACID) [Concomitant]
     Active Substance: ASPIRIN
  7. POTASSIUM(POTASSIUM) [Concomitant]
  8. COLACE(DOCUSATE SODIUM) [Concomitant]
  9. METFORMIN(METFORMIN) [Concomitant]
  10. POMALYST [Suspect]
     Active Substance: POMALIDOMIDE
     Indication: PLASMA CELL MYELOMA
     Dosage: 4 MG, 21 IN 28 D, PO
     Route: 048
     Dates: start: 201408
  11. PANTOPRAZOLE(PANTOPRAZOLE) [Concomitant]
  12. VITAMIN B CMOPLEX (VITAMIN B COMPLEX) [Concomitant]
  13. ACYCLOVIR(ACICLOVIR) [Concomitant]
  14. TRICOR(ADENOSINE) [Concomitant]
  15. LEVOTHYROXINE(LEVOTHYRXINE) [Concomitant]
  16. DEXAMETHASONE(DEXAMETHASONE) [Concomitant]
  17. GLIPIZIDE(GLIPIZIDE) [Concomitant]
  18. ZOCOR(SIMVASTATIN) [Concomitant]

REACTIONS (1)
  - Cholelithiasis [None]
